FAERS Safety Report 5752312-7 (Version None)
Quarter: 2008Q2

REPORT INFORMATION
  Report Type: 
  Country: None (occurrence: None)
  Receive Date: 20080529
  Receipt Date: 20080529
  Transmission Date: 20081010
  Serious: Yes (Other)
  Sender: FDA-Public Use
  Company Number: A0730105A

PATIENT
  Sex: Female

DRUGS (2)
  1. ALLI [Suspect]
     Indication: WEIGHT LOSS DIET
     Route: 048
     Dates: start: 20070601, end: 20080501
  2. MULTI-VITAMIN [Suspect]
     Indication: VITAMIN SUPPLEMENTATION
     Route: 048

REACTIONS (10)
  - ALOPECIA [None]
  - DRUG INEFFECTIVE [None]
  - DRUG INTERACTION [None]
  - FLATULENCE [None]
  - FOOT FRACTURE [None]
  - INSOMNIA [None]
  - MENOPAUSE [None]
  - RECTAL DISCHARGE [None]
  - STEATORRHOEA [None]
  - STOMACH DISCOMFORT [None]
